FAERS Safety Report 24945544 (Version 1)
Quarter: 2025Q1

REPORT INFORMATION
  Report Type: Spontaneous
  Country: CN (occurrence: CN)
  Receive Date: 20250209
  Receipt Date: 20250209
  Transmission Date: 20250408
  Serious: Yes (Other)
  Sender: GE HEALTHCARE
  Company Number: CN-GE HEALTHCARE-2025CSU001273

PATIENT
  Age: 76 Year
  Sex: Male
  Weight: 54 kg

DRUGS (1)
  1. OMNIPAQUE [Suspect]
     Active Substance: IOHEXOL
     Indication: Computerised tomogram
     Route: 042
     Dates: start: 20250106, end: 20250106

REACTIONS (5)
  - Urinary incontinence [Recovering/Resolving]
  - Pallor [Recovering/Resolving]
  - Tachypnoea [Recovering/Resolving]
  - Chest discomfort [Recovering/Resolving]
  - Contrast media allergy [Recovering/Resolving]

NARRATIVE: CASE EVENT DATE: 20250106
